FAERS Safety Report 9650724 (Version 1)
Quarter: 2013Q4

REPORT INFORMATION
  Report Type: Spontaneous
  Country: FR (occurrence: FR)
  Receive Date: 20131029
  Receipt Date: 20131029
  Transmission Date: 20140711
  Serious: Yes (Life-Threatening, Hospitalization)
  Sender: FDA-Public Use
  Company Number: FR-BRISTOL-MYERS SQUIBB COMPANY-19676121

PATIENT
  Age: 56 Year
  Sex: Male
  Weight: 78 kg

DRUGS (2)
  1. ERBITUX [Suspect]
     Indication: LARYNGEAL CANCER
     Dates: start: 20130724, end: 20130911
  2. CORTICOSTEROID [Suspect]
     Indication: LARYNGEAL DISORDER

REACTIONS (2)
  - Lymphopenia [Unknown]
  - Pulmonary fibrosis [Not Recovered/Not Resolved]
